FAERS Safety Report 17806594 (Version 1)
Quarter: 2020Q2

REPORT INFORMATION
  Report Type: Spontaneous
  Country: US (occurrence: US)
  Receive Date: 20200520
  Receipt Date: 20200520
  Transmission Date: 20200714
  Serious: No
  Sender: FDA-Public Use
  Company Number: US-TEVA-2020-US-1237993

PATIENT
  Age: 74 Year
  Sex: Female

DRUGS (5)
  1. FLUOXETINE [Suspect]
     Active Substance: FLUOXETINE HYDROCHLORIDE
     Indication: BIPOLAR II DISORDER
     Dates: start: 20200304
  2. REMERON [Suspect]
     Active Substance: MIRTAZAPINE
     Route: 065
  3. TEVA^S TRAZODONE [Concomitant]
     Indication: INSOMNIA
  4. TRILEPTAL [Concomitant]
     Active Substance: OXCARBAZEPINE
  5. REMERON [Suspect]
     Active Substance: MIRTAZAPINE
     Route: 065

REACTIONS (6)
  - Weight decreased [Not Recovered/Not Resolved]
  - Feeding disorder [Not Recovered/Not Resolved]
  - Middle insomnia [Not Recovered/Not Resolved]
  - Oral pain [Not Recovered/Not Resolved]
  - Aphthous ulcer [Unknown]
  - Dry mouth [Not Recovered/Not Resolved]
